FAERS Safety Report 20936719 (Version 3)
Quarter: 2022Q2

REPORT INFORMATION
  Report Type: Spontaneous
  Country: US (occurrence: None)
  Receive Date: 20220609
  Receipt Date: 20220621
  Transmission Date: 20220721
  Serious: Yes (Hospitalization)
  Sender: FDA-Public Use
  Company Number: US-Unichem Pharmaceuticals (USA) Inc-UCM202206-000530

PATIENT
  Age: 18 Year
  Sex: Male

DRUGS (8)
  1. MEMANTINE [Suspect]
     Active Substance: MEMANTINE
     Indication: Neurotoxicity
  2. MEMANTINE [Suspect]
     Active Substance: MEMANTINE
     Indication: Oedema
  3. DEXAMETHASONE [Concomitant]
     Active Substance: DEXAMETHASONE
     Indication: Headache
  4. DEXAMETHASONE [Concomitant]
     Active Substance: DEXAMETHASONE
     Indication: Neurotoxicity
  5. DEXAMETHASONE [Concomitant]
     Active Substance: DEXAMETHASONE
     Indication: Oedema
  6. BEVACIZUMAB [Concomitant]
     Active Substance: BEVACIZUMAB
     Indication: Medulloblastoma
     Dosage: UNKNOWN
  7. IRINOTECAN [Concomitant]
     Active Substance: IRINOTECAN
     Indication: Medulloblastoma
     Dosage: UNKNOWN
  8. TEMOZOLOMIDE [Concomitant]
     Active Substance: TEMOZOLOMIDE
     Indication: Medulloblastoma
     Dosage: UNKNOWN

REACTIONS (11)
  - Mental status changes [Recovered/Resolved]
  - Ataxia [Recovered/Resolved]
  - Condition aggravated [Recovered/Resolved]
  - Nystagmus [Recovered/Resolved]
  - Dysmetria [Recovered/Resolved]
  - Aphasia [Recovered/Resolved]
  - Nausea [Recovered/Resolved]
  - Confusional state [Recovered/Resolved]
  - Vomiting [Recovered/Resolved]
  - Headache [Recovered/Resolved]
  - Product use in unapproved indication [Unknown]
